FAERS Safety Report 19711164 (Version 1)
Quarter: 2021Q3

REPORT INFORMATION
  Report Type: Spontaneous
  Country: US (occurrence: US)
  Receive Date: 20210817
  Receipt Date: 20210817
  Transmission Date: 20211014
  Serious: Yes (Hospitalization, Other)
  Sender: FDA-Public Use
  Company Number: US-TARO-2021TAR00854

PATIENT

DRUGS (4)
  1. WARFARIN [Suspect]
     Active Substance: WARFARIN
     Indication: PULMONARY EMBOLISM
     Dosage: 3 MILLIGRAM (TARO BRAND)
     Route: 048
     Dates: start: 2013, end: 202107
  2. WARFARIN [Suspect]
     Active Substance: WARFARIN
     Dosage: 2.5 MILLIGRAM, OD, GREEN, ENGRAVED WITH 2 ? ON ONE SIDE AND WARFARIN ON TOP OF TARO ON THE OTHER SID
     Route: 048
     Dates: start: 20210729, end: 20210730
  3. WARFARIN [Suspect]
     Active Substance: WARFARIN
     Dosage: 1.5 MILLIGRAM, ^SPLIT HER 3MG TABLET^
     Route: 048
     Dates: start: 20210727, end: 20210728
  4. LORAZEPAM. [Concomitant]
     Active Substance: LORAZEPAM
     Indication: PRODUCT USED FOR UNKNOWN INDICATION
     Dosage: 0.5 MILLIGRAM, PRN,  AS NEEDED
     Route: 065

REACTIONS (7)
  - Asthenia [Unknown]
  - Dyspnoea [Not Recovered/Not Resolved]
  - Gait disturbance [Not Recovered/Not Resolved]
  - Haematemesis [Unknown]
  - Heart rate irregular [Recovered/Resolved]
  - Nausea [Unknown]
  - Hypertension [Recovered/Resolved]

NARRATIVE: CASE EVENT DATE: 20210731
